FAERS Safety Report 6087918-1 (Version None)
Quarter: 2009Q1

REPORT INFORMATION
  Report Type: 
  Country: None (occurrence: None)
  Receive Date: 20090219
  Receipt Date: 20090219
  Transmission Date: 20090719
  Serious: No
  Sender: FDA-Public Use
  Company Number: None

PATIENT
  Age: 43 Year
  Sex: Male
  Weight: 70.7611 kg

DRUGS (12)
  1. CHANTIX [Suspect]
     Dosage: 1MG BID PO
     Route: 048
  2. MAXAIR [Concomitant]
  3. ROZIREM [Concomitant]
  4. ZOCOR [Concomitant]
  5. METFORMIN [Concomitant]
  6. ADVAIR HFA [Concomitant]
  7. ALBUTEROL [Concomitant]
  8. LOTENSIN [Concomitant]
  9. DEPAKOTE HCTZ [Concomitant]
  10. IPATROPIUM [Concomitant]
  11. LITHIUM [Concomitant]
  12. LORAZEPAM [Concomitant]

REACTIONS (4)
  - ABNORMAL BEHAVIOUR [None]
  - INCORRECT DOSE ADMINISTERED [None]
  - SOMNOLENCE [None]
  - SUICIDE ATTEMPT [None]
